FAERS Safety Report 25856335 (Version 1)
Quarter: 2025Q3

REPORT INFORMATION
  Report Type: Spontaneous
  Country: US (occurrence: US)
  Receive Date: 20250928
  Receipt Date: 20250928
  Transmission Date: 20251021
  Serious: Yes (Hospitalization)
  Sender: AMGEN
  Company Number: US-AMGEN-USASP2025189924

PATIENT
  Age: 60 Year
  Sex: Male

DRUGS (2)
  1. KRYSTEXXA [Suspect]
     Active Substance: PEGLOTICASE
     Indication: Glucose-6-phosphate dehydrogenase deficiency
     Route: 040
     Dates: start: 20250909
  2. KRYSTEXXA [Suspect]
     Active Substance: PEGLOTICASE
     Indication: Off label use

REACTIONS (2)
  - Unevaluable event [Unknown]
  - Off label use [Unknown]

NARRATIVE: CASE EVENT DATE: 20250901
